FAERS Safety Report 6392335-0 (Version None)
Quarter: 2009Q4

REPORT INFORMATION
  Report Type: 
  Country: None (occurrence: None)
  Receive Date: 20091007
  Receipt Date: 20090924
  Transmission Date: 20100525
  Serious: Yes (Hospitalization)
  Sender: FDA-Public Use
  Company Number: PHEH2009US09885

PATIENT
  Sex: Female
  Weight: 53.515 kg

DRUGS (13)
  1. RECLAST [Suspect]
     Indication: OSTEOPOROSIS POSTMENOPAUSAL
     Dosage: UNK
     Route: 042
     Dates: start: 20090731, end: 20090731
  2. RECLAST [Suspect]
     Indication: DYSPHAGIA
  3. RECLAST [Suspect]
     Indication: MASTICATION DISORDER
  4. B12 ^RECIP^ [Concomitant]
     Indication: VITAMIN B12 DEFICIENCY
     Dosage: 1000 MCG MONTHLY
     Route: 030
  5. IRON [Concomitant]
  6. SYNTHROID [Concomitant]
     Indication: HYPOTHYROIDISM
     Dosage: 50 UG, QD
  7. PRAVACHOL [Concomitant]
     Indication: HYPERCHOLESTEROLAEMIA
     Dosage: 20 MG, QD
     Route: 048
  8. ATENOLOL [Concomitant]
     Indication: HYPERTENSION
     Dosage: 12.5 MG, QD
  9. VITAMIN D [Concomitant]
     Indication: VITAMIN D DEFICIENCY
     Dosage: 2000 U, QD
     Route: 048
  10. VIACTIV                                 /USA/ [Concomitant]
  11. ASPIRIN [Concomitant]
     Indication: CARDIOVASCULAR EVENT PROPHYLAXIS
     Dosage: 81 MG, QD
     Route: 048
  12. XANAX [Concomitant]
     Indication: ANXIETY
     Dosage: HALF TABLET AS NEEDED
     Route: 048
  13. MIRALAX [Concomitant]
     Indication: CONSTIPATION
     Dosage: ONE SCOOP DAILY
     Route: 048

REACTIONS (15)
  - BACK PAIN [None]
  - BODY TEMPERATURE INCREASED [None]
  - CARBON DIOXIDE DECREASED [None]
  - CEREBROVASCULAR INSUFFICIENCY [None]
  - EPISTAXIS [None]
  - GLIOSIS [None]
  - HEADACHE [None]
  - HYPERSENSITIVITY [None]
  - INFLUENZA LIKE ILLNESS [None]
  - JOINT SWELLING [None]
  - MOVEMENT DISORDER [None]
  - NECK PAIN [None]
  - PAIN [None]
  - SPEECH DISORDER [None]
  - WHITE BLOOD CELL COUNT INCREASED [None]
